FAERS Safety Report 13382441 (Version 3)
Quarter: 2017Q2

REPORT INFORMATION
  Report Type: Report from Study
  Country: TW (occurrence: TW)
  Receive Date: 20170329
  Receipt Date: 20170502
  Transmission Date: 20170830
  Serious: Yes (Life-Threatening, Hospitalization, Disabling, Other)
  Sender: FDA-Public Use
  Company Number: PHHY2017TW036977

PATIENT
  Age: 78 Year
  Sex: Male
  Weight: 50 kg

DRUGS (2)
  1. EXELON PATCH [Suspect]
     Active Substance: RIVASTIGMINE
     Indication: DEMENTIA ALZHEIMER^S TYPE
     Dosage: 9.5 MG, QD (PATCH 10 (CM2))
     Route: 062
     Dates: start: 20161214, end: 20170209
  2. EXELON PATCH [Suspect]
     Active Substance: RIVASTIGMINE
     Dosage: 9.5 MG, QD (PATCH 10 (CM2))
     Route: 062

REACTIONS (14)
  - Pneumonia [Recovering/Resolving]
  - Ileus [Recovering/Resolving]
  - Pyelonephritis acute [Recovering/Resolving]
  - Chronic respiratory failure [Not Recovered/Not Resolved]
  - Haematuria [Recovering/Resolving]
  - Septic shock [Recovering/Resolving]
  - Dysphagia [Not Recovered/Not Resolved]
  - Pyrexia [Recovering/Resolving]
  - Troponin I increased [Unknown]
  - Hypophagia [Recovering/Resolving]
  - Respiratory failure [Recovering/Resolving]
  - Mobility decreased [Not Recovered/Not Resolved]
  - Blood lactate dehydrogenase increased [Unknown]
  - Sepsis [Recovering/Resolving]

NARRATIVE: CASE EVENT DATE: 20170209
